FAERS Safety Report 7003554-4 (Version None)
Quarter: 2010Q3

REPORT INFORMATION
  Report Type: 
  Country: None (occurrence: None)
  Receive Date: 20100920
  Receipt Date: 20100910
  Transmission Date: 20110219
  Serious: Yes (Life-Threatening)
  Sender: FDA-Public Use
  Company Number: IT-AMGEN-QUU437713

PATIENT
  Sex: Male

DRUGS (1)
  1. ENBREL [Suspect]
     Indication: ANKYLOSING SPONDYLITIS
     Dosage: 50 MG WEEKLY
     Route: 058
     Dates: start: 20100608, end: 20100713

REACTIONS (1)
  - FEBRILE NEUTROPENIA [None]
